FAERS Safety Report 9105501 (Version 2)
Quarter: 2013Q2

REPORT INFORMATION
  Report Type: Spontaneous
  Country: FR (occurrence: FR)
  Receive Date: 20130220
  Receipt Date: 20130404
  Transmission Date: 20140414
  Serious: Yes (Hospitalization, Other)
  Sender: FDA-Public Use
  Company Number: FR-ASTRAZENECA-2013SE10604

PATIENT
  Age: 9117 Day
  Sex: Female

DRUGS (4)
  1. XEROQUEL [Suspect]
     Indication: SCHIZOPHRENIA
     Route: 048
     Dates: start: 201212
  2. XEROQUEL [Interacting]
     Indication: SCHIZOPHRENIA
     Route: 048
  3. DEROXAT [Interacting]
     Route: 048
     Dates: start: 20121226, end: 20121227
  4. LOXAPAC [Suspect]
     Dates: start: 201212

REACTIONS (2)
  - Drug interaction [Recovered/Resolved]
  - Grand mal convulsion [Recovered/Resolved]
